APPROVED DRUG PRODUCT: CEPHALEXIN
Active Ingredient: CEPHALEXIN
Strength: EQ 125MG BASE/5ML
Dosage Form/Route: FOR SUSPENSION;ORAL
Application: A210221 | Product #001 | TE Code: AB
Applicant: ALKEM LABORATORIES LTD
Approved: Mar 26, 2019 | RLD: No | RS: No | Type: RX